FAERS Safety Report 4367884-7 (Version None)
Quarter: 2004Q2

REPORT INFORMATION
  Report Type: 
  Country: None (occurrence: None)
  Receive Date: 20040601
  Receipt Date: 20040601
  Transmission Date: 20050107
  Serious: Yes (Life-Threatening)
  Sender: FDA-Public Use
  Company Number: None

PATIENT
  Age: 50 Year
  Sex: Male
  Weight: 102.0593 kg

DRUGS (2)
  1. SEROQUEL [Suspect]
     Indication: DEPRESSION
     Dosage: 200 MG 2 X DAILY ORAL
     Route: 048
     Dates: start: 20030903, end: 20040530
  2. SEROQUEL [Suspect]

REACTIONS (1)
  - DIABETES MELLITUS [None]
